FAERS Safety Report 9067783 (Version 1)
Quarter: 2013Q1

REPORT INFORMATION
  Report Type: Report from Study
  Country: US (occurrence: US)
  Receive Date: 20130206
  Receipt Date: 20130206
  Transmission Date: 20140127
  Serious: Yes (Hospitalization)
  Sender: FDA-Public Use
  Company Number: US-ABBOTT-13P-163-1042855-00

PATIENT
  Sex: Female
  Weight: 60.84 kg

DRUGS (2)
  1. HUMIRA [Suspect]
     Indication: CROHN^S DISEASE
     Route: 058
     Dates: start: 200903, end: 201204
  2. HUMIRA [Suspect]
     Route: 058
     Dates: start: 201206, end: 201209

REACTIONS (3)
  - Intestinal obstruction [Recovered/Resolved]
  - Protein total increased [Recovered/Resolved]
  - Oedema peripheral [Recovered/Resolved]
